FAERS Safety Report 14664038 (Version 1)
Quarter: 2018Q1

REPORT INFORMATION
  Report Type: Spontaneous
  Country: US (occurrence: US)
  Receive Date: 20180321
  Receipt Date: 20180321
  Transmission Date: 20180509
  Serious: No
  Sender: FDA-Public Use
  Company Number: US-AAA-201700306

PATIENT
  Age: 32 Year
  Sex: Female
  Weight: 38 kg

DRUGS (7)
  1. GABAPENTIN. [Concomitant]
     Active Substance: GABAPENTIN
     Indication: PRODUCT USED FOR UNKNOWN INDICATION
     Dosage: 2 CAPS TID
     Route: 048
     Dates: start: 20171016
  2. OMNIPAQUE [Suspect]
     Active Substance: IOHEXOL
     Indication: SCAN WITH CONTRAST
     Route: 048
     Dates: start: 20171211, end: 20171211
  3. ACETAMINOPHEN. [Concomitant]
     Active Substance: ACETAMINOPHEN
     Indication: PRODUCT USED FOR UNKNOWN INDICATION
     Dosage: 1 TO 2 TABLETS/DAY AS NEEDED
     Route: 048
  4. GA68-DOTATATE [Suspect]
     Active Substance: DOTATATE GALLIUM GA-68
     Indication: POSITRON EMISSION TOMOGRAM
     Route: 042
     Dates: start: 20171211, end: 20171211
  5. FLUTICASONE PROPIONATE. [Concomitant]
     Active Substance: FLUTICASONE PROPIONATE
     Indication: PRODUCT USED FOR UNKNOWN INDICATION
     Dosage: 1 SPRAY IN EACH NOSTRIL BID
     Route: 045
     Dates: start: 20170823
  6. LEVETIRACETAM. [Concomitant]
     Active Substance: LEVETIRACETAM
     Indication: PRODUCT USED FOR UNKNOWN INDICATION
     Dosage: 500 MG BID
     Route: 048
  7. FERROUS SULFATE. [Concomitant]
     Active Substance: FERROUS SULFATE
     Indication: PRODUCT USED FOR UNKNOWN INDICATION
     Route: 065

REACTIONS (3)
  - Urticaria [Recovered/Resolved]
  - Erythema [Recovered/Resolved]
  - Off label use [Recovered/Resolved]

NARRATIVE: CASE EVENT DATE: 20171211
